FAERS Safety Report 20208224 (Version 1)
Quarter: 2021Q4

REPORT INFORMATION
  Report Type: Spontaneous
  Country: US (occurrence: None)
  Receive Date: 20211220
  Receipt Date: 20211220
  Transmission Date: 20220304
  Serious: Yes (Other)
  Sender: FDA-Public Use
  Company Number: None

PATIENT
  Age: 31 Year
  Sex: Female
  Weight: 89.55 kg

DRUGS (4)
  1. ADVAIR DISKUS [Suspect]
     Active Substance: FLUTICASONE PROPIONATE\SALMETEROL XINAFOATE
     Indication: Asthma
     Dosage: FREQUENCY : TWICE A DAY;?
     Route: 055
     Dates: start: 20211008, end: 20211020
  2. ALBUTEROL [Concomitant]
     Active Substance: ALBUTEROL
  3. ETONOGESTREL [Concomitant]
     Active Substance: ETONOGESTREL
  4. montelkast [Concomitant]

REACTIONS (2)
  - Nausea [None]
  - Refusal of treatment by relative [None]

NARRATIVE: CASE EVENT DATE: 20211020
